FAERS Safety Report 15617967 (Version 2)
Quarter: 2018Q4

REPORT INFORMATION
  Report Type: Report from Study
  Country: JP (occurrence: JP)
  Receive Date: 20181114
  Receipt Date: 20181204
  Transmission Date: 20190205
  Serious: Yes (Hospitalization)
  Sender: FDA-Public Use
  Company Number: JP-BAUSCH-BL-2018-024096

PATIENT
  Age: 47 Year
  Sex: Female
  Weight: 73 kg

DRUGS (8)
  1. MARDUOX [Concomitant]
     Active Substance: BETAMETHASONE BUTYRATE PROPIONATE\MAXACALCITOL
     Indication: PRODUCT USED FOR UNKNOWN INDICATION
     Route: 065
     Dates: end: 20180124
  2. LUMICEF [Suspect]
     Active Substance: BRODALUMAB
     Indication: PUSTULAR PSORIASIS
     Route: 058
     Dates: start: 20180124, end: 20180131
  3. LUMICEF [Suspect]
     Active Substance: BRODALUMAB
     Route: 058
     Dates: start: 20180214, end: 20180314
  4. PREDONINE [Concomitant]
     Active Substance: PREDNISOLONE
     Indication: PRODUCT USED FOR UNKNOWN INDICATION
     Route: 065
  5. LUMICEF [Suspect]
     Active Substance: BRODALUMAB
     Route: 058
     Dates: start: 20180409, end: 2018
  6. LUMICEF [Suspect]
     Active Substance: BRODALUMAB
     Route: 058
     Dates: start: 20181024, end: 20181024
  7. ALLELOCK [Concomitant]
     Active Substance: OLOPATADINE HYDROCHLORIDE
     Indication: PRODUCT USED FOR UNKNOWN INDICATION
     Route: 065
     Dates: start: 20180523, end: 20180704
  8. NEORAL [Concomitant]
     Active Substance: CYCLOSPORINE
     Indication: PRODUCT USED FOR UNKNOWN INDICATION
     Dosage: ORAL DRUG UNSPECIFIED FORM
     Route: 048

REACTIONS (2)
  - Pustular psoriasis [Not Recovered/Not Resolved]
  - Bronchitis [Recovered/Resolved]

NARRATIVE: CASE EVENT DATE: 20180320
